FAERS Safety Report 7308652-3 (Version None)
Quarter: 2011Q1

REPORT INFORMATION
  Report Type: 
  Country: None (occurrence: None)
  Receive Date: 20110223
  Receipt Date: 20110218
  Transmission Date: 20110831
  Serious: Yes (Hospitalization)
  Sender: FDA-Public Use
  Company Number: DE-MERCK-1101DEU00096

PATIENT
  Age: 57 Year
  Sex: Female
  Weight: 70 kg

DRUGS (2)
  1. COZAAR [Suspect]
     Route: 048
     Dates: start: 20020101
  2. PROPAFENONE HYDROCHLORIDE [Concomitant]
     Route: 065

REACTIONS (1)
  - TRANSIENT GLOBAL AMNESIA [None]
